FAERS Safety Report 4900594-3 (Version None)
Quarter: 2006Q1

REPORT INFORMATION
  Report Type: 
  Country: None (occurrence: None)
  Receive Date: 20060201
  Receipt Date: 20060120
  Transmission Date: 20060701
  Serious: Yes (Other)
  Sender: FDA-Public Use
  Company Number: KII-2006-0020945

PATIENT
  Age: 41 Year
  Sex: Male

DRUGS (4)
  1. MORPHINE SULFATE [Suspect]
     Indication: PAIN
     Dosage: ORAL
     Route: 048
  2. CARISOPRODOL [Suspect]
     Dosage: DAILY, ORAL
     Route: 048
  3. ACETAMINOPHEN AND HYDROCODONE BITARTRATE [Suspect]
     Dosage: BID, ORAL
     Route: 048
  4. BENZODIAZEPINE DERIVATES [Suspect]
     Dosage: BID , ORAL
     Route: 048

REACTIONS (6)
  - ANGER [None]
  - COMA [None]
  - CONVULSION [None]
  - FALL [None]
  - REFUSAL OF TREATMENT BY PATIENT [None]
  - UNRESPONSIVE TO PAIN STIMULI [None]
